FAERS Safety Report 12772062 (Version 1)
Quarter: 2016Q3

REPORT INFORMATION
  Report Type: Spontaneous
  Country: US (occurrence: US)
  Receive Date: 20160922
  Receipt Date: 20160922
  Transmission Date: 20161109
  Serious: No
  Sender: FDA-Public Use
  Company Number: US-WATSON-2015-24620

PATIENT
  Sex: Male

DRUGS (1)
  1. LIDOCAINE HYDROCHLORIDE (WATSON LABORATORIES) [Suspect]
     Active Substance: LIDOCAINE HYDROCHLORIDE
     Indication: BACK PAIN
     Dosage: 5 %, HAS THE PATCH ON 12 HOURS THEN OFF FOR 12 HOURS
     Route: 062

REACTIONS (1)
  - Application site pain [Not Recovered/Not Resolved]
